FAERS Safety Report 4869670-8 (Version None)
Quarter: 2005Q4

REPORT INFORMATION
  Report Type: 
  Country: None (occurrence: None)
  Receive Date: 20051223
  Receipt Date: 20051220
  Transmission Date: 20060501
  Serious: Yes (Hospitalization)
  Sender: FDA-Public Use
  Company Number: HQWYE105820DEC05

PATIENT
  Age: 63 Year
  Sex: Male

DRUGS (4)
  1. CYCLOSPORINE [Suspect]
     Indication: PROPHYLAXIS AGAINST TRANSPLANT REJECTION
     Dosage: 200 MG 1X PER 1 DAY ORAL
     Route: 048
     Dates: start: 20051119
  2. AMLODIPINE [Concomitant]
  3. SULFAMETHIZOLE (SULFAMETHIZOLE) [Concomitant]
  4. TRIMETHOPRIM [Concomitant]

REACTIONS (1)
  - LYMPHOCELE [None]
